FAERS Safety Report 18558002 (Version 1)
Quarter: 2020Q4

REPORT INFORMATION
  Report Type: Spontaneous
  Country: DE (occurrence: DE)
  Receive Date: 20201130
  Receipt Date: 20201130
  Transmission Date: 20210114
  Serious: Yes (Death, Other)
  Sender: FDA-Public Use
  Company Number: DE-ROCHE-2719480

PATIENT
  Age: 49 Year
  Sex: Female

DRUGS (2)
  1. ATEZOLIZUMAB. [Suspect]
     Active Substance: ATEZOLIZUMAB
     Indication: TRIPLE NEGATIVE BREAST CANCER
     Dosage: 840MG TAG 1+15
     Route: 043
     Dates: start: 202009, end: 202010
  2. NAB-PACLITAXEL [Suspect]
     Active Substance: PACLITAXEL
     Indication: TRIPLE NEGATIVE BREAST CANCER
     Dosage: 100MG/M2, TAG 1+8+15; Q28D
     Route: 043
     Dates: start: 202009, end: 202010

REACTIONS (6)
  - Renal failure [Unknown]
  - Sepsis [Fatal]
  - Hepatic failure [Unknown]
  - Pancytopenia [Fatal]
  - Coagulopathy [Unknown]
  - Ileus [Unknown]

NARRATIVE: CASE EVENT DATE: 202010
